FAERS Safety Report 19628240 (Version 1)
Quarter: 2021Q3

REPORT INFORMATION
  Report Type: Report from Study
  Country: US (occurrence: US)
  Receive Date: 20210729
  Receipt Date: 20210729
  Transmission Date: 20211014
  Serious: Yes (Hospitalization, Other)
  Sender: FDA-Public Use
  Company Number: US-TAKEDA-2021TUS045654

PATIENT
  Sex: Male
  Weight: 63.5 kg

DRUGS (17)
  1. HUMAN NORMAL IMMUNOGLOBULIN; LIQUID [Suspect]
     Active Substance: HUMAN IMMUNOGLOBULIN G
     Indication: HYPOGAMMAGLOBULINAEMIA
     Dosage: Q4W35 GRAM, Q4WEEKS
     Route: 042
  2. SIRTURO [Concomitant]
     Active Substance: BEDAQUILINE FUMARATE
  3. ZYRTEC [Concomitant]
     Active Substance: CETIRIZINE HYDROCHLORIDE
  4. ETHAMBUTOL [Concomitant]
     Active Substance: ETHAMBUTOL HYDROCHLORIDE
  5. BACTRIM [Concomitant]
     Active Substance: SULFAMETHOXAZOLE\TRIMETHOPRIM
  6. HUMAN NORMAL IMMUNOGLOBULIN; LIQUID [Suspect]
     Active Substance: HUMAN IMMUNOGLOBULIN G
     Indication: IMMUNE SYSTEM DISORDER
  7. EPINEPHRINE. [Concomitant]
     Active Substance: EPINEPHRINE
  8. DIPHENHYDRAMINE. [Concomitant]
     Active Substance: DIPHENHYDRAMINE
  9. SODIUM CHLORIDE. [Concomitant]
     Active Substance: SODIUM CHLORIDE
  10. LMX [Concomitant]
  11. PENICILLIN [Concomitant]
     Active Substance: PENICILLIN
  12. ACTIMMUNE [Concomitant]
     Active Substance: INTERFERON GAMMA-1B
  13. AZITHROMYCIN ANHYDROUS. [Concomitant]
     Active Substance: AZITHROMYCIN ANHYDROUS
  14. CLOFAZIMINE [Concomitant]
     Active Substance: CLOFAZIMINE
  15. ACETAMINOPHEN. [Concomitant]
     Active Substance: ACETAMINOPHEN
  16. PFIZER?BIONTECH COVID?19 VACCINE [Concomitant]
     Active Substance: TOZINAMERAN
  17. RIFABUTIN. [Concomitant]
     Active Substance: RIFABUTIN

REACTIONS (1)
  - Portal vein dilatation [Unknown]
